FAERS Safety Report 19211763 (Version 2)
Quarter: 2022Q1

REPORT INFORMATION
  Report Type: Report from Study
  Country: ES (occurrence: ES)
  Receive Date: 20210504
  Receipt Date: 20220213
  Transmission Date: 20220424
  Serious: Yes (Other)
  Sender: FDA-Public Use
  Company Number: ES-SUN PHARMACEUTICAL INDUSTRIES LTD-2021R1-294367

PATIENT
  Age: 48 Year
  Sex: Female

DRUGS (1)
  1. PREDNISONE [Suspect]
     Active Substance: PREDNISONE
     Indication: Dermatomyositis
     Dosage: 5 MILLIGRAM, DAILY
     Route: 065

REACTIONS (1)
  - Mycobacterium chelonae infection [Unknown]
